FAERS Safety Report 12146064 (Version 1)
Quarter: 2016Q1

REPORT INFORMATION
  Report Type: Spontaneous
  Country: US (occurrence: US)
  Receive Date: 20160304
  Receipt Date: 20160304
  Transmission Date: 20160526
  Serious: No
  Sender: FDA-Public Use
  Company Number: US-PERRIGO-15US005672

PATIENT
  Age: 65 Year
  Sex: Female
  Weight: 90.7 kg

DRUGS (2)
  1. MUSCLE RUB                         /00735901/ [Concomitant]
     Indication: ARTHRITIS
     Dosage: UNK
     Route: 061
  2. NAPROXEN SODIUM 220 MG 368 [Suspect]
     Active Substance: NAPROXEN SODIUM
     Indication: ARTHRITIS
     Dosage: 440 MG AT 1000, 220 MG AT 1300, 440 MG AT 2000
     Route: 048
     Dates: start: 20150601, end: 20150601

REACTIONS (3)
  - Drug ineffective [Unknown]
  - Incorrect dose administered [Recovered/Resolved]
  - Expired product administered [Recovered/Resolved]

NARRATIVE: CASE EVENT DATE: 20150601
